FAERS Safety Report 9629237 (Version 5)
Quarter: 2014Q3

REPORT INFORMATION
  Report Type: Spontaneous
  Country: JP (occurrence: JP)
  Receive Date: 20131017
  Receipt Date: 20140813
  Transmission Date: 20150326
  Serious: Yes (Death, Hospitalization)
  Sender: FDA-Public Use
  Company Number: JP-SA-2013SA103813

PATIENT
  Age: 68 Year
  Sex: Female
  Weight: 53.5 kg

DRUGS (4)
  1. TAXOTERE [Suspect]
     Active Substance: DOCETAXEL
     Indication: BREAST CANCER
     Route: 041
     Dates: start: 20130927, end: 20130927
  2. DEXART [Concomitant]
     Active Substance: DEXAMETHASONE SODIUM PHOSPHATE
     Route: 048
     Dates: start: 20130927, end: 20130927
  3. ENDOXAN [Suspect]
     Active Substance: CYCLOPHOSPHAMIDE
     Indication: BREAST CANCER
     Dosage: DOSE: 810 MG/DOSE
     Route: 065
     Dates: start: 20130927, end: 20130927
  4. GRANISETRON [Concomitant]
     Active Substance: GRANISETRON
     Indication: PREMEDICATION
     Dosage: FORM: JELLY
     Route: 048
     Dates: start: 20130927, end: 20130927

REACTIONS (5)
  - Haemoptysis [Fatal]
  - Neutropenia [Unknown]
  - Pulmonary haemorrhage [Fatal]
  - Acute respiratory distress syndrome [Fatal]
  - Chest pain [Fatal]

NARRATIVE: CASE EVENT DATE: 20131004
